FAERS Safety Report 4440359-2 (Version None)
Quarter: 2004Q3

REPORT INFORMATION
  Report Type: 
  Country: None (occurrence: None)
  Receive Date: 20040901
  Receipt Date: 20040901
  Transmission Date: 20050211
  Serious: No
  Sender: FDA-Public Use
  Company Number: None

PATIENT
  Sex: Female
  Weight: 95.2554 kg

DRUGS (2)
  1. LITHIUM CARBONATE [Suspect]
     Indication: BORDERLINE PERSONALITY DISORDER
     Dosage: 450 MG 1 AM 1 NOON
     Dates: start: 20040820, end: 20040831
  2. LITHIUM CARBONATE [Suspect]
     Indication: DEPRESSION
     Dosage: 450 MG 1 AM 1 NOON
     Dates: start: 20040820, end: 20040831

REACTIONS (5)
  - ABDOMINAL PAIN UPPER [None]
  - NAUSEA [None]
  - PHARMACEUTICAL PRODUCT COMPLAINT [None]
  - RETCHING [None]
  - VOMITING [None]
